FAERS Safety Report 8954239 (Version 1)
Quarter: 2012Q4

REPORT INFORMATION
  Report Type: Report from Study
  Country: CA (occurrence: CA)
  Receive Date: 20121207
  Receipt Date: 20121207
  Transmission Date: 20130627
  Serious: Yes (Other)
  Sender: FDA-Public Use
  Company Number: CA-ROCHE-1165333

PATIENT
  Sex: Female
  Weight: 111 kg

DRUGS (2)
  1. OMALIZUMAB [Suspect]
     Indication: ASTHMA
     Dosage: 300 mg, UNK
     Route: 065
     Dates: start: 20060109
  2. OMALIZUMAB [Suspect]
     Route: 058
     Dates: start: 20060501

REACTIONS (11)
  - Depression [Unknown]
  - Headache [Unknown]
  - Influenza [Recovering/Resolving]
  - Nasopharyngitis [Recovering/Resolving]
  - Feeling abnormal [Unknown]
  - Nasal congestion [Unknown]
  - Oropharyngeal pain [Unknown]
  - Asthma [Unknown]
  - Abdominal pain upper [Unknown]
  - Eye pruritus [Unknown]
  - Lacrimation increased [Unknown]
